FAERS Safety Report 9523663 (Version 2)
Quarter: 2013Q4

REPORT INFORMATION
  Report Type: Spontaneous
  Country: JP (occurrence: JP)
  Receive Date: 20130913
  Receipt Date: 20131017
  Transmission Date: 20140711
  Serious: Yes (Other)
  Sender: FDA-Public Use
  Company Number: PHHY2013JP101514

PATIENT
  Sex: Male

DRUGS (2)
  1. DIOVAN [Suspect]
     Indication: HYPERTENSION
     Dosage: 80 MG, DAILY
     Route: 048
  2. DIOVAN [Suspect]
     Dosage: UNK
     Route: 048
     Dates: end: 20130730

REACTIONS (2)
  - Blood pressure systolic increased [Unknown]
  - Blister [Unknown]
